FAERS Safety Report 6936937-9 (Version None)
Quarter: 2010Q3

REPORT INFORMATION
  Report Type: 
  Country: None (occurrence: None)
  Receive Date: 20100818
  Receipt Date: 20100809
  Transmission Date: 20110219
  Serious: Yes (Death, Life-Threatening, Other)
  Sender: FDA-Public Use
  Company Number: 2007-01904

PATIENT
  Age: 65 Year
  Sex: Male
  Weight: 59 kg

DRUGS (12)
  1. VELCADE [Suspect]
     Indication: MULTIPLE MYELOMA
     Dosage: 1.5 MG, CYCLIC, INTRAVENOUS, 1.1 CYCLIC, INTRAVENOUS
     Route: 042
     Dates: start: 20070320, end: 20070720
  2. VELCADE [Suspect]
     Indication: MULTIPLE MYELOMA
     Dosage: 1.5 MG, CYCLIC, INTRAVENOUS, 1.1 CYCLIC, INTRAVENOUS
     Route: 042
     Dates: start: 20070814, end: 20071113
  3. VELCADE [Suspect]
     Indication: MULTIPLE MYELOMA
     Dosage: 1.5 MG, CYCLIC, INTRAVENOUS, 1.1 CYCLIC, INTRAVENOUS
     Route: 042
     Dates: start: 20080701, end: 20080905
  4. DEXAMETHASONE [Suspect]
     Indication: MULTIPLE MYELOMA
     Dosage: 20 MG, INTRAVENOUS
     Route: 042
     Dates: start: 20070320, end: 20071114
  5. PRIMPERAN TAB [Concomitant]
  6. COTRIM [Concomitant]
  7. CIPROXAN (CIPROFLOXACIN HYDROCHLORIDE) TABLET [Concomitant]
  8. BASEN (VOGLIBOSE) [Concomitant]
  9. AMARYL [Concomitant]
  10. LANSOPRAZOLE [Concomitant]
  11. MAGNESIUM OXIDE (MAGNESIUM OXIDE) [Concomitant]
  12. ZOVIRAX [Concomitant]

REACTIONS (7)
  - DISEASE PROGRESSION [None]
  - HEPATIC FUNCTION ABNORMAL [None]
  - HERPES ZOSTER [None]
  - HYPOAESTHESIA [None]
  - MULTIPLE MYELOMA [None]
  - PLATELET COUNT DECREASED [None]
  - URINARY TRACT INFECTION [None]
